FAERS Safety Report 7987162-4 (Version None)
Quarter: 2011Q4

REPORT INFORMATION
  Report Type: 
  Country: None (occurrence: None)
  Receive Date: 20111216
  Receipt Date: 20111003
  Transmission Date: 20120403
  Serious: No
  Sender: FDA-Public Use
  Company Number: US-BRISTOL-MYERS SQUIBB COMPANY-16125817

PATIENT
  Age: 25 Year
  Sex: Male
  Weight: 66 kg

DRUGS (2)
  1. ABILIFY [Suspect]
  2. MELATONIN [Concomitant]

REACTIONS (7)
  - HYPERSOMNIA [None]
  - FATIGUE [None]
  - MYALGIA [None]
  - DRUG ADMINISTRATION ERROR [None]
  - DIZZINESS [None]
  - NAUSEA [None]
  - HYPERHIDROSIS [None]
